FAERS Safety Report 8336436-6 (Version None)
Quarter: 2012Q2

REPORT INFORMATION
  Report Type: 
  Country: None (occurrence: None)
  Receive Date: 20120504
  Receipt Date: 20120503
  Transmission Date: 20120825
  Serious: Yes (Hospitalization, Other)
  Sender: FDA-Public Use
  Company Number: CN-PFIZER INC-2012106854

PATIENT
  Age: 22 Year
  Sex: Female

DRUGS (2)
  1. MEDROL [Suspect]
     Indication: SYSTEMIC LUPUS ERYTHEMATOSUS
     Dosage: 36MG DAILY
     Route: 048
     Dates: start: 20120101, end: 20120101
  2. MEDROL [Suspect]
     Dosage: 28MG DAILY
     Route: 048
     Dates: start: 20120101

REACTIONS (2)
  - EPILEPSY [None]
  - MEMORY IMPAIRMENT [None]
